FAERS Safety Report 24694477 (Version 3)
Quarter: 2025Q1

REPORT INFORMATION
  Report Type: Report from Study
  Country: US (occurrence: US)
  Receive Date: 20241204
  Receipt Date: 20250305
  Transmission Date: 20250409
  Serious: No
  Sender: JOHNSON AND JOHNSON
  Company Number: US-JNJFOC-20241130400

PATIENT

DRUGS (2)
  1. STELARA [Suspect]
     Active Substance: USTEKINUMAB
     Indication: Colitis ulcerative
     Dosage: STRENGTH: UNKNOWN
     Route: 058
     Dates: start: 202401
  2. STELARA [Suspect]
     Active Substance: USTEKINUMAB
     Indication: Crohn^s disease
     Dosage: STRENGTH: UNKNOWN
     Route: 058

REACTIONS (4)
  - Device defective [Unknown]
  - Product packaging quantity issue [Unknown]
  - Off label use [Unknown]
  - Therapeutic response decreased [Unknown]
